FAERS Safety Report 15203056 (Version 1)
Quarter: 2018Q3

REPORT INFORMATION
  Report Type: Spontaneous
  Country: US (occurrence: US)
  Receive Date: 20180627
  Receipt Date: 20180627
  Transmission Date: 20181010
  Serious: Yes (Disabling)
  Sender: FDA-Public Use
  Company Number: None

PATIENT
  Age: 59 Year
  Sex: Female

DRUGS (3)
  1. MELATONIN [Concomitant]
     Active Substance: MELATONIN
  2. FLUTICASONE PROPIONATE NASAL SPRAY, NDC#60505?0829?1 LOT NJ4501 [Suspect]
     Active Substance: FLUTICASONE PROPIONATE
     Indication: NASAL CONGESTION
     Dosage: ?          OTHER STRENGTH:120 METERED SPRAYS;QUANTITY:2 SPRAY(S);?
     Route: 055
  3. BENADRYL [Concomitant]
     Active Substance: DIPHENHYDRAMINE HYDROCHLORIDE

REACTIONS (3)
  - Pain [None]
  - Scab [None]
  - Nasal mucosal ulcer [None]

NARRATIVE: CASE EVENT DATE: 20171223
